FAERS Safety Report 21295079 (Version 3)
Quarter: 2022Q3

REPORT INFORMATION
  Report Type: Spontaneous
  Country: BE (occurrence: BE)
  Receive Date: 20220905
  Receipt Date: 20220921
  Transmission Date: 20221026
  Serious: Yes (Other)
  Sender: FDA-Public Use
  Company Number: BE-GSKCCFEMEA-Case-01564278_AE-61794

PATIENT

DRUGS (1)
  1. NUCALA [Suspect]
     Active Substance: MEPOLIZUMAB
     Indication: Product used for unknown indication
     Dosage: 100 MG, Z, MONTHLY, 100MG/ML 3X1ML_BE-GSK
     Route: 058
     Dates: start: 20220824, end: 20220824

REACTIONS (5)
  - Respiratory distress [Unknown]
  - Exposure via skin contact [Recovered/Resolved with Sequelae]
  - Asthma [Unknown]
  - Incorrect dose administered by device [Unknown]
  - Product complaint [Unknown]

NARRATIVE: CASE EVENT DATE: 20220824
